FAERS Safety Report 6407177-7 (Version None)
Quarter: 2009Q4

REPORT INFORMATION
  Report Type: 
  Country: None (occurrence: None)
  Receive Date: 20091015
  Receipt Date: 20091005
  Transmission Date: 20100525
  Serious: Yes (Life-Threatening)
  Sender: FDA-Public Use
  Company Number: 2009AL006491

PATIENT
  Age: 35 Year
  Sex: Male

DRUGS (4)
  1. VENLAFAXINE HCL [Suspect]
     Indication: DEPRESSION
     Dosage: 75 MG; PO
     Route: 048
     Dates: start: 20080827
  2. ZOPICLONE [Concomitant]
  3. ALBUTEROL SULFATE AUTOHALER [Concomitant]
  4. SEREVENT [Concomitant]

REACTIONS (5)
  - AMNESIA [None]
  - INSOMNIA [None]
  - ROAD TRAFFIC ACCIDENT [None]
  - SOMNAMBULISM [None]
  - SOMNOLENCE [None]
